FAERS Safety Report 4397470-4 (Version None)
Quarter: 2004Q3

REPORT INFORMATION
  Report Type: 
  Country: None (occurrence: None)
  Receive Date: 20040709
  Receipt Date: 20040630
  Transmission Date: 20050211
  Serious: Yes (Other)
  Sender: FDA-Public Use
  Company Number: JP-JNJFOC-20040605187

PATIENT
  Age: 68 Year
  Sex: Female

DRUGS (6)
  1. ITRACONAZOLE [Suspect]
     Dosage: 200 MG, 1 IN 1 DAY, ORAL
     Route: 048
  2. SULPYRINE (METAMIZOLE SODIUM) [Suspect]
     Dosage: INJECTION
  3. CARVEDILOL [Concomitant]
  4. FLECAINIDE ACETATE [Concomitant]
  5. VALPROATE SODIUM [Concomitant]
  6. UBENIMEX (UBENIMEX) [Concomitant]

REACTIONS (2)
  - SHOCK [None]
  - TORSADE DE POINTES [None]
